FAERS Safety Report 14327372 (Version 1)
Quarter: 2017Q4

REPORT INFORMATION
  Report Type: Spontaneous
  Country: US (occurrence: US)
  Receive Date: 20171227
  Receipt Date: 20171227
  Transmission Date: 20180321
  Serious: No
  Sender: FDA-Public Use
  Company Number: US-PFIZER INC-2017348999

PATIENT
  Age: 62 Year
  Sex: Female
  Weight: 85.28 kg

DRUGS (21)
  1. IBRANCE [Suspect]
     Active Substance: PALBOCICLIB
     Dosage: 125 MG, 1X/DAY
     Dates: end: 201710
  2. VITAMIN D3 [Concomitant]
     Active Substance: CHOLECALCIFEROL
     Dosage: 2000 IU, 1X/DAY, (1 IN A.M)
  3. CYMBALTA [Concomitant]
     Active Substance: DULOXETINE HYDROCHLORIDE
     Dosage: 60 MG, 1X/DAY (AM)
  4. GABAPENTIN. [Concomitant]
     Active Substance: GABAPENTIN
     Dosage: 600 MG, 2X/DAY, 600 MG/DAY IN A.M. (AND 1 AT NIGHT)
  5. LORAZEPAM. [Concomitant]
     Active Substance: LORAZEPAM
     Dosage: 1 MG, 1X/DAY, (AT BEDTIME)
  6. SEROQUEL [Concomitant]
     Active Substance: QUETIAPINE FUMARATE
     Dosage: 75 MG, 1X/DAY, (THREE 25 MG PILLS AT BEDTIME)
  7. BENADRYL [Concomitant]
     Active Substance: DIPHENHYDRAMINE HYDROCHLORIDE
     Dosage: UNK UNK, AS NEEDED, (1-2 TABLETS/DAY)
  8. LETROZOLE. [Concomitant]
     Active Substance: LETROZOLE
     Dosage: 2.5 MG, 1X/DAY, (1/DAY IN A.M, EACH DAY WITH IBRANCE)
  9. FENOFIBRATE. [Concomitant]
     Active Substance: FENOFIBRATE
     Indication: BLOOD CHOLESTEROL ABNORMAL
     Dosage: 160 MG, 1X/DAY, (AT NIGHT)
  10. IBRANCE [Suspect]
     Active Substance: PALBOCICLIB
     Indication: BREAST CANCER
     Dosage: 125 MG, CYCLIC, (FOR 21 DAYS ON, 7 DAYS OFF)
     Route: 048
  11. BABY ASPIRIN [Concomitant]
     Active Substance: ASPIRIN
     Dosage: UNK, (1)
  12. ABILIFY [Concomitant]
     Active Substance: ARIPIPRAZOLE
     Dosage: 5 MG, 1X/DAY (AM)
  13. SENNA S [Concomitant]
     Active Substance: DOCUSATE SODIUM\SENNA LEAF
     Indication: CONSTIPATION
     Dosage: UNK UNK, AS NEEDED, (2-4 TABLETS A DAY AS NEEDED)
  14. CALCIUM [Concomitant]
     Active Substance: CALCIUM
     Dosage: 600 MG, 2X/DAY, (1200 MG DAY CALCIUM, HALF IN A.M AND HALF IN P.M)
  15. METOPROLOL SUCCINATE. [Concomitant]
     Active Substance: METOPROLOL SUCCINATE
     Indication: BLOOD PRESSURE ABNORMAL
     Dosage: 25 MG, 1X/DAY, (1/DAY IN A.M )
  16. MELOXICAM. [Concomitant]
     Active Substance: MELOXICAM
     Dosage: UNK, 2X/DAY, (7.5 TABLET 1 IN A.M. (AND 1 AT NIGHT))
  17. OXYCODONE W/PARACETAMOL [Concomitant]
     Active Substance: ACETAMINOPHEN\OXYCODONE HYDROCHLORIDE
     Dosage: 1 DF, AS NEEDED, (10-325 1 TABLET 3 TIMES DAY WHEN NEEDED)
  18. VALACYCLOVIR [Concomitant]
     Active Substance: VALACYCLOVIR HYDROCHLORIDE
     Dosage: 1000 MG, AS NEEDED, (2 TABLETS/DAY AS NEEDED)
  19. XGEVA [Concomitant]
     Active Substance: DENOSUMAB
     Dosage: UNK UNK, EVERY 3 MONTHS, [1 SHOT (INJECTION)]
  20. ERGOTAMINE/BELLADONNA/PHENOBARBITAL [Concomitant]
     Dosage: UNK UNK, 3X/DAY, (1 IN A.M  (AND TAKE 2 AT NIGHT))
  21. LORAZEPAM. [Concomitant]
     Active Substance: LORAZEPAM
     Dosage: 2 MG, AS NEEDED, (2 TABLETS/DAY WHEN NEEDED)

REACTIONS (1)
  - Upper respiratory tract infection [Recovering/Resolving]
